FAERS Safety Report 21482739 (Version 1)
Quarter: 2022Q4

REPORT INFORMATION
  Report Type: Report from Study
  Country: FR (occurrence: FR)
  Receive Date: 20221020
  Receipt Date: 20221020
  Transmission Date: 20230113
  Serious: Yes (Hospitalization)
  Sender: FDA-Public Use
  Company Number: FR-SERVIER-S22010590

PATIENT

DRUGS (26)
  1. PEGASPARGASE [Suspect]
     Active Substance: PEGASPARGASE
     Indication: Acute lymphocytic leukaemia
     Dosage: 2400 [IU], OTHER
     Route: 042
     Dates: start: 20211213, end: 20211213
  2. PEGASPARGASE [Suspect]
     Active Substance: PEGASPARGASE
     Dosage: 2200 [IU], OTHER
     Route: 042
     Dates: start: 20220113, end: 20220113
  3. MERCAPTOPURINE [Suspect]
     Active Substance: MERCAPTOPURINE
     Indication: Acute lymphocytic leukaemia
     Dosage: 57 MG, D29 TO D42
     Route: 048
     Dates: start: 20211230, end: 20220112
  4. CYCLOPHOSPHAMIDE [Suspect]
     Active Substance: CYCLOPHOSPHAMIDE
     Indication: Acute lymphocytic leukaemia
     Dosage: 930 MG, D29
     Route: 042
     Dates: start: 20211230, end: 20211230
  5. CYTARABINE [Suspect]
     Active Substance: CYTARABINE
     Indication: Acute lymphocytic leukaemia
     Dosage: 70 MG, D31 TO D34
     Route: 042
     Dates: start: 20211230, end: 20220111
  6. CYTARABINE [Suspect]
     Active Substance: CYTARABINE
     Dosage: 30 MG, D31
     Route: 037
     Dates: start: 20220101, end: 20220101
  7. CYTARABINE [Suspect]
     Active Substance: CYTARABINE
     Dosage: 70 MG, D38 TO D41
     Route: 042
     Dates: start: 20220108, end: 20220111
  8. METHOTREXATE [Suspect]
     Active Substance: METHOTREXATE
     Indication: Acute lymphocytic leukaemia
     Dosage: 12 MG, D31
     Route: 037
     Dates: start: 20220101, end: 20220101
  9. HYDROCORTISONE [Suspect]
     Active Substance: HYDROCORTISONE
     Indication: Acute lymphocytic leukaemia
     Dosage: 15 MG, D31
     Route: 037
     Dates: start: 20220101, end: 20220101
  10. VINCRISTINE [Suspect]
     Active Substance: VINCRISTINE
     Indication: Acute lymphocytic leukaemia
     Dosage: 1.4 MG, D43 AND D50
     Route: 042
     Dates: start: 20220113, end: 20220120
  11. ONDANSETRON [Concomitant]
     Active Substance: ONDANSETRON
     Indication: Prophylaxis
     Dosage: 4 MG
     Route: 042
  12. OMEPRAZOLE [Concomitant]
     Active Substance: OMEPRAZOLE
     Indication: Prophylaxis
     Dosage: 20 MG
     Route: 042
  13. LENOGRASTIM [Concomitant]
     Active Substance: LENOGRASTIM
     Indication: Prophylaxis
     Dosage: 0.105 MG
     Route: 042
  14. LINEZOLID [Concomitant]
     Active Substance: LINEZOLID
     Indication: Prophylaxis
     Dosage: 230 MG
     Route: 042
  15. FUROSEMIDE [Concomitant]
     Active Substance: FUROSEMIDE
     Indication: Product used for unknown indication
     Dosage: 10 MG
     Route: 042
  16. VITAMIN K1 [Concomitant]
     Active Substance: PHYTONADIONE
     Indication: Product used for unknown indication
     Dosage: 10 MG
     Route: 042
  17. ROXITHROMYCIN [Concomitant]
     Active Substance: ROXITHROMYCIN
     Indication: Product used for unknown indication
     Dosage: 100 MG
     Route: 048
  18. POLYETHYLENE GLYCOLS [Concomitant]
     Active Substance: POLYETHYLENE GLYCOLS
     Indication: Prophylaxis
     Dosage: 4 G
     Route: 048
  19. MORPHINE [Concomitant]
     Active Substance: MORPHINE
     Indication: Product used for unknown indication
     Dosage: 100 MG
     Route: 042
  20. POTASSIUM [Concomitant]
     Active Substance: POTASSIUM
     Indication: Product used for unknown indication
     Route: 042
  21. SODIUM [Concomitant]
     Active Substance: SODIUM
     Indication: Product used for unknown indication
     Route: 042
  22. ALIZAPRIDE DCI [Concomitant]
     Indication: Prophylaxis
     Dosage: 70 MG
     Route: 042
  23. AMIKACIN [Concomitant]
     Active Substance: AMIKACIN
     Indication: Prophylaxis
     Dosage: 345 MG
     Route: 042
  24. NALBUPHINE [Concomitant]
     Active Substance: NALBUPHINE
     Indication: Prophylaxis
     Dosage: 2.5 MG
     Route: 042
  25. IMIPENEM AND CILASTATIN [Concomitant]
     Active Substance: CILASTATIN SODIUM\IMIPENEM
     Indication: Product used for unknown indication
     Route: 065
  26. AMPHOTERICIN B [Concomitant]
     Active Substance: AMPHOTERICIN B
     Indication: Product used for unknown indication
     Route: 065

REACTIONS (1)
  - Posterior reversible encephalopathy syndrome [Recovered/Resolved]

NARRATIVE: CASE EVENT DATE: 20220204
